FAERS Safety Report 24329220 (Version 4)
Quarter: 2025Q3

REPORT INFORMATION
  Report Type: Report from Study
  Country: US (occurrence: US)
  Receive Date: 20240917
  Receipt Date: 20250710
  Transmission Date: 20251020
  Serious: Yes (Death, Hospitalization, Other)
  Sender: ROCHE
  Company Number: US-ROCHE-3521935

PATIENT
  Age: 47 Year
  Sex: Male
  Weight: 98.43 kg

DRUGS (16)
  1. OCREVUS [Suspect]
     Active Substance: OCRELIZUMAB
     Indication: Primary progressive multiple sclerosis
     Dosage: DATE OF MOST RECENT INFUSION: 11/SEP/2023, 26/SEP/2023, /NOV/2023.
     Route: 042
     Dates: start: 202309, end: 202311
  2. SATRALIZUMAB [Suspect]
     Active Substance: SATRALIZUMAB
     Indication: Neuromyelitis optica spectrum disorder
     Dosage: START DATE: 26-MAR-2024
     Route: 058
     Dates: end: 20241106
  3. KEPPRA [Concomitant]
     Active Substance: LEVETIRACETAM
  4. MACROBID [Concomitant]
     Active Substance: NITROFURANTOIN\NITROFURANTOIN MONOHYDRATE
     Route: 048
     Dates: start: 202401
  5. LIORESAL [Concomitant]
     Active Substance: BACLOFEN
     Route: 048
     Dates: start: 202307
  6. VITAMIN B12 [Concomitant]
     Active Substance: CYANOCOBALAMIN
  7. CYMBALTA [Concomitant]
     Active Substance: DULOXETINE HYDROCHLORIDE
  8. FLONASE [Concomitant]
     Active Substance: FLUTICASONE PROPIONATE
  9. NEURONTIN [Concomitant]
     Active Substance: GABAPENTIN
     Route: 048
     Dates: start: 202307
  10. TORADOL [Concomitant]
     Active Substance: KETOROLAC TROMETHAMINE
  11. SINGULAIR [Concomitant]
     Active Substance: MONTELUKAST SODIUM
  12. PRILOSEC [Concomitant]
     Active Substance: OMEPRAZOLE MAGNESIUM
  13. POTASSIUM GLUCONATE [Concomitant]
     Active Substance: POTASSIUM GLUCONATE
  14. VIAGRA [Concomitant]
     Active Substance: SILDENAFIL CITRATE
  15. VESICARE [Concomitant]
     Active Substance: SOLIFENACIN SUCCINATE
  16. ATIVAN [Concomitant]
     Active Substance: LORAZEPAM

REACTIONS (16)
  - Seizure [Not Recovered/Not Resolved]
  - Fatigue [Unknown]
  - Deafness [Unknown]
  - Sleep disorder [Unknown]
  - Visual impairment [Unknown]
  - Sepsis [Fatal]
  - White blood cell count increased [Fatal]
  - Red blood cell count increased [Recovered/Resolved]
  - Off label use [Unknown]
  - Urinary tract infection [Fatal]
  - Neurogenic bladder [Not Recovered/Not Resolved]
  - Rash [Not Recovered/Not Resolved]
  - Balance disorder [Not Recovered/Not Resolved]
  - Muscular weakness [Not Recovered/Not Resolved]
  - Death [Fatal]
  - Pneumonia [Unknown]

NARRATIVE: CASE EVENT DATE: 20230901
